FAERS Safety Report 25914721 (Version 1)
Quarter: 2025Q4

REPORT INFORMATION
  Report Type: Spontaneous
  Country: EU (occurrence: EU)
  Receive Date: 20251013
  Receipt Date: 20251013
  Transmission Date: 20260118
  Serious: Yes (Other)
  Sender: Haleon PLC
  Company Number: None

PATIENT
  Age: 69 Year
  Sex: Female
  Weight: 60.382 kg

DRUGS (1)
  1. FLUTICASONE PROPIONATE [Suspect]
     Active Substance: FLUTICASONE PROPIONATE
     Indication: Upper-airway cough syndrome
     Dosage: 2 PUMPS EACH NOSTRIL ONCE DAY.?EXP: 02/2027
     Route: 045
     Dates: start: 20250731, end: 20250913

REACTIONS (2)
  - Ophthalmic migraine [Recovered/Resolved]
  - Condition aggravated [Recovered/Resolved]

NARRATIVE: CASE EVENT DATE: 20250731
